FAERS Safety Report 12537444 (Version 2)
Quarter: 2016Q3

REPORT INFORMATION
  Report Type: Spontaneous
  Country: US (occurrence: US)
  Receive Date: 20160707
  Receipt Date: 20160712
  Transmission Date: 20161109
  Serious: Yes (Hospitalization, Other)
  Sender: FDA-Public Use
  Company Number: US-PFIZER INC-2016331649

PATIENT
  Age: 4 Year
  Sex: Male
  Weight: 25 kg

DRUGS (6)
  1. PROAIR HFA [Concomitant]
     Active Substance: ALBUTEROL SULFATE
     Indication: ASTHMA
     Dosage: 90 UG, UNK, ^^EVERY 4 TO SIX HOURS^
     Route: 055
  2. GUANFACINE. [Concomitant]
     Active Substance: GUANFACINE
     Indication: AUTISM
     Dosage: 2.5 ML, 2X/DAY, ^EVERY MORNING AND EVERY AFTERNOON^
  3. RISPERIDONE. [Concomitant]
     Active Substance: RISPERIDONE
     Indication: AUTISM
     Dosage: 0.25 ML, 2X/DAY
  4. QUILLIVANT XR [Suspect]
     Active Substance: METHYLPHENIDATE HYDROCHLORIDE
     Indication: AUTISM
     Dosage: 2.5 ML, SINGLE
     Route: 048
     Dates: start: 20160617, end: 20160617
  5. CLONIDINE. [Suspect]
     Active Substance: CLONIDINE
     Dosage: 1 ML, UNK
     Dates: start: 2016
  6. CLONIDINE. [Suspect]
     Active Substance: CLONIDINE
     Indication: INSOMNIA
     Dosage: 2.5 ML, UNK
     Dates: end: 2016

REACTIONS (8)
  - Disorientation [Unknown]
  - Off label use [Unknown]
  - Dyspnoea [Recovered/Resolved]
  - Hypertension [Recovering/Resolving]
  - Coma [Unknown]
  - Hypopnoea [Unknown]
  - Somnolence [Unknown]
  - Brain oedema [Unknown]

NARRATIVE: CASE EVENT DATE: 2016
